FAERS Safety Report 6158047-3 (Version None)
Quarter: 2009Q2

REPORT INFORMATION
  Report Type: 
  Country: None (occurrence: None)
  Receive Date: 20090417
  Receipt Date: 20090406
  Transmission Date: 20091009
  Serious: Yes (Hospitalization)
  Sender: FDA-Public Use
  Company Number: PE-MEDIMMUNE-MEDI-0008315

PATIENT
  Sex: Female
  Weight: 1.95 kg

DRUGS (4)
  1. SYNAGIS [Suspect]
     Indication: ANTIVIRAL PROPHYLAXIS
     Route: 030
     Dates: start: 20090213, end: 20090316
  2. SYNAGIS [Suspect]
     Route: 030
     Dates: start: 20090213
  3. TROPICAMIDE [Concomitant]
     Dates: start: 20090404
  4. PHENYLEPHRINE [Concomitant]
     Dates: start: 20090404

REACTIONS (5)
  - ANOREXIA [None]
  - APNOEA [None]
  - COUGH [None]
  - NASAL CONGESTION [None]
  - RESPIRATORY DISTRESS [None]
